FAERS Safety Report 6907350-5 (Version None)
Quarter: 2010Q3

REPORT INFORMATION
  Report Type: 
  Country: None (occurrence: None)
  Receive Date: 20100802
  Receipt Date: 20100716
  Transmission Date: 20110219
  Serious: Yes (Hospitalization)
  Sender: FDA-Public Use
  Company Number: 2010RR-36290

PATIENT
  Age: 31 Year
  Sex: Male

DRUGS (2)
  1. ACETAMINOPHEN [Suspect]
     Dates: start: 20100603, end: 20100603
  2. CLOZAPINE [Suspect]
     Indication: SCHIZOPHRENIA
     Dosage: ORAL
     Route: 048
     Dates: start: 20091130

REACTIONS (4)
  - CONFUSIONAL STATE [None]
  - HALLUCINATION, AUDITORY [None]
  - OVERDOSE [None]
  - SEDATION [None]
